FAERS Safety Report 20120972 (Version 7)
Quarter: 2022Q2

REPORT INFORMATION
  Report Type: Spontaneous
  Country: CA (occurrence: CA)
  Receive Date: 20211127
  Receipt Date: 20220610
  Transmission Date: 20220721
  Serious: Yes (Other)
  Sender: FDA-Public Use
  Company Number: CA-CELLTRION INC.-2021CA016064

PATIENT

DRUGS (8)
  1. INFLECTRA [Suspect]
     Active Substance: INFLIXIMAB-DYYB
     Indication: Ankylosing spondylitis
     Dosage: 700 MG, 0, 2, 6 THEN 8 WEEKS
     Route: 042
     Dates: start: 20211117
  2. INFLECTRA [Suspect]
     Active Substance: INFLIXIMAB-DYYB
     Dosage: 700 MG, 0, 2, 6 THEN 8 WEEKS
     Route: 042
     Dates: start: 20211203
  3. INFLECTRA [Suspect]
     Active Substance: INFLIXIMAB-DYYB
     Dosage: 700 MG, 0, 2, 6 THEN 8 WEEKS
     Route: 042
     Dates: start: 20211203
  4. INFLECTRA [Suspect]
     Active Substance: INFLIXIMAB-DYYB
     Dosage: 700 MG, 0, 2, 6 THEN 8 WEEKS
     Route: 042
     Dates: start: 20211231
  5. INFLECTRA [Suspect]
     Active Substance: INFLIXIMAB-DYYB
     Dosage: 700 MG, 0, 2, 6 THEN 8 WEEKS
     Route: 042
     Dates: start: 20220225
  6. INFLECTRA [Suspect]
     Active Substance: INFLIXIMAB-DYYB
     Dosage: 700 MG, 0, 2, 6 THEN 8 WEEKS
     Route: 042
     Dates: start: 20220409
  7. NAPROXEN SODIUM [Concomitant]
     Active Substance: NAPROXEN SODIUM
     Dosage: UNK
  8. SYNTHROID [Concomitant]
     Active Substance: LEVOTHYROXINE SODIUM
     Dosage: UNK

REACTIONS (7)
  - Hypertension [Not Recovered/Not Resolved]
  - Off label use [Unknown]
  - Intentional product use issue [Unknown]
  - Inappropriate schedule of product administration [Unknown]
  - Anxiety [Unknown]
  - Eye disorder [Not Recovered/Not Resolved]
  - Headache [Not Recovered/Not Resolved]

NARRATIVE: CASE EVENT DATE: 20211117
